FAERS Safety Report 15022485 (Version 1)
Quarter: 2018Q2

REPORT INFORMATION
  Report Type: Spontaneous
  Country: FR (occurrence: FR)
  Receive Date: 20180618
  Receipt Date: 20180618
  Transmission Date: 20180711
  Serious: Yes (Hospitalization)
  Sender: FDA-Public Use
  Company Number: FR-TEVA-2018-FR-908815

PATIENT
  Age: 16 Year
  Sex: Female
  Weight: 43 kg

DRUGS (3)
  1. CODOLIPRANE [Suspect]
     Active Substance: ACETAMINOPHEN\CODEINE PHOSPHATE
     Route: 048
     Dates: start: 20180415, end: 20180415
  2. ANTADYS [Suspect]
     Active Substance: FLURBIPROFEN
     Route: 048
     Dates: start: 20180415, end: 20180415
  3. BIRODOGYL [Suspect]
     Active Substance: METRONIDAZOLE\SPIRAMYCIN
     Dates: start: 20180415, end: 20180415

REACTIONS (4)
  - Abdominal pain [Recovered/Resolved]
  - Pancreatitis [Recovering/Resolving]
  - Abdominal pain upper [Recovered/Resolved]
  - Vomiting [Recovered/Resolved]

NARRATIVE: CASE EVENT DATE: 20180415
